FAERS Safety Report 25371413 (Version 1)
Quarter: 2025Q2

REPORT INFORMATION
  Report Type: Spontaneous
  Country: US (occurrence: US)
  Receive Date: 20250529
  Receipt Date: 20250529
  Transmission Date: 20250717
  Serious: No
  Sender: RANBAXY
  Company Number: US-SUN PHARMACEUTICAL INDUSTRIES LTD-2024R1-452994

PATIENT
  Sex: Male

DRUGS (6)
  1. BROMSITE [Suspect]
     Active Substance: BROMFENAC SODIUM
     Indication: Inflammation
     Dosage: 1 DROP, DAILY
     Route: 065
     Dates: start: 20240619
  2. BROMSITE [Suspect]
     Active Substance: BROMFENAC SODIUM
     Indication: Eye pain
  3. LISINOPRIL [Concomitant]
     Active Substance: LISINOPRIL
     Indication: Hypertension
     Route: 065
  4. ATORVASTATIN [Concomitant]
     Active Substance: ATORVASTATIN
     Indication: Hypercholesterolaemia
     Route: 065
  5. OFLOXACIN [Concomitant]
     Active Substance: OFLOXACIN
     Indication: Product used for unknown indication
     Route: 065
  6. PREDNISOLONE [Concomitant]
     Active Substance: PREDNISOLONE
     Indication: Product used for unknown indication
     Route: 065

REACTIONS (4)
  - Product physical issue [Unknown]
  - Poor quality product administered [Unknown]
  - Product storage error [Unknown]
  - Product prescribing issue [Unknown]
